FAERS Safety Report 12325683 (Version 3)
Quarter: 2016Q2

REPORT INFORMATION
  Report Type: Spontaneous
  Country: US (occurrence: US)
  Receive Date: 20160503
  Receipt Date: 20160524
  Transmission Date: 20160815
  Serious: No
  Sender: FDA-Public Use
  Company Number: US-ASTRAZENECA-2016SE45918

PATIENT
  Age: 865 Month
  Sex: Female
  Weight: 54.4 kg

DRUGS (10)
  1. DALIRESP [Suspect]
     Active Substance: ROFLUMILAST
     Indication: ASTHMA
     Dosage: CUTTING 500 MCG IN HALF
     Route: 048
     Dates: start: 201507, end: 201507
  2. METOPROLOL TART [Concomitant]
     Active Substance: METOPROLOL TARTRATE
     Indication: CARDIAC DISORDER
     Route: 048
     Dates: start: 2014
  3. HYDROCHLOROTHIAZIDE. [Concomitant]
     Active Substance: HYDROCHLOROTHIAZIDE
     Indication: DIURETIC THERAPY
     Route: 048
     Dates: start: 2014
  4. CRESTOR [Suspect]
     Active Substance: ROSUVASTATIN CALCIUM
     Indication: BLOOD CHOLESTEROL ABNORMAL
     Route: 048
     Dates: start: 2002
  5. DALIRESP [Suspect]
     Active Substance: ROFLUMILAST
     Indication: CHRONIC OBSTRUCTIVE PULMONARY DISEASE
     Route: 048
     Dates: start: 201501, end: 2015
  6. HYDROCHLOROTHIAZIDE. [Concomitant]
     Active Substance: HYDROCHLOROTHIAZIDE
     Indication: CARDIAC DISORDER
     Route: 048
     Dates: start: 2014
  7. DALIRESP [Suspect]
     Active Substance: ROFLUMILAST
     Indication: CHRONIC OBSTRUCTIVE PULMONARY DISEASE
     Dosage: 500MCG ONCE DAILY IN THE MORNING
     Route: 048
  8. DALIRESP [Suspect]
     Active Substance: ROFLUMILAST
     Indication: ASTHMA
     Dosage: 500MCG ONCE DAILY IN THE MORNING
     Route: 048
  9. DALIRESP [Suspect]
     Active Substance: ROFLUMILAST
     Indication: CHRONIC OBSTRUCTIVE PULMONARY DISEASE
     Dosage: CUTTING 500 MCG IN HALF
     Route: 048
     Dates: start: 201507, end: 201507
  10. DALIRESP [Suspect]
     Active Substance: ROFLUMILAST
     Indication: ASTHMA
     Route: 048
     Dates: start: 201501, end: 2015

REACTIONS (8)
  - Fatigue [Unknown]
  - Weight increased [Recovered/Resolved]
  - Diarrhoea [Recovered/Resolved]
  - Off label use [Unknown]
  - Product use issue [Unknown]
  - Pneumonia [Unknown]
  - Weight decreased [Recovered/Resolved]
  - Drug dose omission [Recovered/Resolved]

NARRATIVE: CASE EVENT DATE: 201501
